FAERS Safety Report 9202139 (Version 1)
Quarter: 2013Q1

REPORT INFORMATION
  Report Type: Spontaneous
  Country: IT (occurrence: None)
  Receive Date: 20130328
  Receipt Date: 20130328
  Transmission Date: 20140127
  Serious: Yes (Hospitalization)
  Sender: FDA-Public Use
  Company Number: AUR-APL-2013-02621

PATIENT
  Age: 43 Year
  Sex: Female

DRUGS (3)
  1. OLANZAPINE (OLANZAPINE) [Suspect]
     Indication: PSYCHOTIC DISORDER
     Dosage: 28 UNIT DOSE OF 10 MG TOTAL, ORAL?
     Route: 048
     Dates: start: 20130123, end: 20130123
  2. MOMENTACT [Suspect]
     Indication: PRODUCT USED FOR UNKNOWN INDICATION
     Dosage: 30 UNIT DOSE OF 400 MG TOTAL, ORAL
     Route: 048
     Dates: start: 20130123, end: 20130123
  3. SERENASE (HALOPERIDOL) [Concomitant]

REACTIONS (2)
  - Sopor [None]
  - Toxicity to various agents [None]
